FAERS Safety Report 16850607 (Version 1)
Quarter: 2019Q3

REPORT INFORMATION
  Report Type: Spontaneous
  Country: US (occurrence: US)
  Receive Date: 20190925
  Receipt Date: 20190925
  Transmission Date: 20191005
  Serious: No
  Sender: FDA-Public Use
  Company Number: US-THERAPEUTICSMD-2019TMD02274

PATIENT
  Age: 54 Year
  Sex: Female
  Weight: 57.14 kg

DRUGS (2)
  1. IMVEXXY [Suspect]
     Active Substance: ESTRADIOL
     Dosage: 10 ?G, 2X/WEEK IN THE MORNING
     Route: 067
     Dates: start: 201907
  2. IMVEXXY [Suspect]
     Active Substance: ESTRADIOL
     Indication: VULVOVAGINAL DRYNESS
     Dosage: 10 ?G, 1X/DAY IN THE MORNING
     Route: 067
     Dates: start: 201907, end: 201907

REACTIONS (2)
  - Breast tenderness [Not Recovered/Not Resolved]
  - Off label use [Not Recovered/Not Resolved]

NARRATIVE: CASE EVENT DATE: 201907
